FAERS Safety Report 13129265 (Version 3)
Quarter: 2017Q1

REPORT INFORMATION
  Report Type: Spontaneous
  Country: ES (occurrence: ES)
  Receive Date: 20170119
  Receipt Date: 20170202
  Transmission Date: 20170428
  Serious: Yes (Other)
  Sender: FDA-Public Use
  Company Number: ES-009507513-1701ESP006067

PATIENT
  Age: 60 Year
  Sex: Male

DRUGS (11)
  1. PARAPRES [Concomitant]
     Active Substance: CANDESARTAN CILEXETIL
     Route: 048
  2. PLUSVENT [Concomitant]
     Active Substance: FLUTICASONE PROPIONATE\SALMETEROL XINAFOATE
     Route: 055
  3. ACETAMINOPHEN. [Concomitant]
     Active Substance: ACETAMINOPHEN
     Route: 048
  4. DILUTOL (TORSEMIDE) [Concomitant]
     Active Substance: TORSEMIDE
     Route: 048
  5. TRAMADOL HYDROCHLORIDE. [Concomitant]
     Active Substance: TRAMADOL HYDROCHLORIDE
     Route: 048
  6. ZEPATIER [Suspect]
     Active Substance: ELBASVIR\GRAZOPREVIR
     Indication: HEPATITIS C
     Dosage: (50/100 MG)1 TABLET/DAY
     Route: 048
     Dates: start: 20161222, end: 20170102
  7. TRYPTIZOL [Concomitant]
     Active Substance: AMITRIPTYLINE HYDROCHLORIDE
     Route: 048
  8. EKLIRA [Concomitant]
     Active Substance: ACLIDINIUM BROMIDE
     Route: 055
  9. CADUET [Concomitant]
     Active Substance: AMLODIPINE BESYLATE\ATORVASTATIN CALCIUM
     Route: 048
  10. TERBASMIN [Concomitant]
     Active Substance: TERBUTALINE SULFATE
     Route: 055
  11. OMEPRAZOLE. [Concomitant]
     Active Substance: OMEPRAZOLE
     Route: 048

REACTIONS (9)
  - Mental disorder [Unknown]
  - Asthenia [Unknown]
  - Claustrophobia [Unknown]
  - Headache [Unknown]
  - Decreased appetite [Unknown]
  - Dizziness [Unknown]
  - Suicidal ideation [Unknown]
  - Apathy [Unknown]
  - Depression [Recovering/Resolving]

NARRATIVE: CASE EVENT DATE: 20161226
